FAERS Safety Report 8619551 (Version 4)
Quarter: 2013Q4

REPORT INFORMATION
  Report Type: Report from Study
  Country: CA (occurrence: CA)
  Receive Date: 20120618
  Receipt Date: 20131029
  Transmission Date: 20140711
  Serious: Yes (Other)
  Sender: FDA-Public Use
  Company Number: PHHY2012CA045930

PATIENT
  Age: 62 Year
  Sex: Female
  Weight: 59 kg

DRUGS (6)
  1. EXTAVIA [Suspect]
     Indication: SECONDARY PROGRESSIVE MULTIPLE SCLEROSIS
     Dosage: 8 MIU, QOD
     Route: 058
     Dates: start: 20120522
  2. EXTAVIA [Suspect]
     Indication: RELAPSING-REMITTING MULTIPLE SCLEROSIS
     Dosage: 4 MIU, QOD
     Route: 058
  3. EXTAVIA [Suspect]
     Dosage: 6 MIU, QOD
     Route: 058
     Dates: end: 20120606
  4. CALCIUM WITH VITAMIN D [Concomitant]
     Dosage: UNK UKN, UNK
  5. ESTRACE/MEDROXY [Concomitant]
     Dosage: UNK UKN, UNK
  6. ATENOLOL [Concomitant]
     Dosage: UNK UKN, UNK

REACTIONS (11)
  - Cervical spinal stenosis [Unknown]
  - Dizziness [Not Recovered/Not Resolved]
  - Candida infection [Not Recovered/Not Resolved]
  - Hypoaesthesia [Not Recovered/Not Resolved]
  - Tongue disorder [Unknown]
  - Speech disorder [Unknown]
  - Drug hypersensitivity [Unknown]
  - Dry mouth [Unknown]
  - Incorrect dose administered [Unknown]
  - Paraesthesia oral [Unknown]
  - Nausea [Unknown]
